FAERS Safety Report 20055521 (Version 2)
Quarter: 2024Q2

REPORT INFORMATION
  Report Type: Spontaneous
  Country: FR (occurrence: FR)
  Receive Date: 20211110
  Receipt Date: 20240531
  Transmission Date: 20240716
  Serious: Yes (Hospitalization, Other)
  Sender: FDA-Public Use
  Company Number: None

PATIENT
  Age: 73 Year
  Sex: Female
  Weight: 48 kg

DRUGS (9)
  1. DOXORUBICIN HYDROCHLORIDE [Suspect]
     Active Substance: DOXORUBICIN HYDROCHLORIDE
     Indication: Ovarian cancer
     Dosage: 1.25 MG, 1 X CYCLICAL (1?25 MG PER CYCLE)
     Route: 042
     Dates: start: 20210324, end: 20210618
  2. DOXORUBICIN [Suspect]
     Active Substance: DOXORUBICIN
     Indication: Ovarian cancer
     Dosage: 1.25 MG, LIPOSOMAL INJECTION
     Route: 042
     Dates: start: 20210324, end: 20210618
  3. LENOGRASTIM [Suspect]
     Active Substance: LENOGRASTIM
     Indication: Neutropenia
     Dosage: 5 DOSAGE FORM, 1 X MONTH (5 INJECTIONS PER MONTH)
     Route: 058
     Dates: start: 20210525, end: 20210618
  4. METHYLPREDNISOLONE ACETATE [Suspect]
     Active Substance: METHYLPREDNISOLONE ACETATE
     Indication: Chemotherapy side effect prophylaxis
     Dosage: 40 MG, 1 X CYCLICAL
     Route: 065
     Dates: start: 20210423, end: 20210618
  5. YONDELIS [Suspect]
     Active Substance: TRABECTEDIN
     Indication: Ovarian cancer
     Dosage: 34 MG, 1 X CYCLICAL (34 MG PER CYCLE)
     Route: 042
     Dates: start: 20210324, end: 20210618
  6. PEGFILGRASTIM [Suspect]
     Active Substance: PEGFILGRASTIM
     Indication: Neutropenia
     Dosage: UNK, (DOSAGE FORM: SOLUTION FOR INJECTION IN A PRE-FILLED SYRINGE)
     Route: 058
     Dates: start: 20210618
  7. VOGALENE [Suspect]
     Active Substance: METOPIMAZINE
     Indication: Antiemetic supportive care
     Dosage: UNK, DOSAGE FORM: ORAL SOLUTION IN BOTTLE, STRENGTH: 0.1%
     Route: 048
     Dates: start: 20210423, end: 20210618
  8. VOGALENE [Suspect]
     Active Substance: METOPIMAZINE
     Dosage: UNK
     Route: 048
     Dates: start: 20210323, end: 20210618
  9. ONDANSETRON [Suspect]
     Active Substance: ONDANSETRON
     Indication: Antiemetic supportive care
     Dosage: UNK, IF NEEDED (DOSAGE FORM: ORALLY DISINTEGRATING TABLET)
     Route: 048
     Dates: start: 20210423

REACTIONS (1)
  - Interstitial lung disease [Recovered/Resolved]

NARRATIVE: CASE EVENT DATE: 20210716
